FAERS Safety Report 9068699 (Version 1)
Quarter: 2013Q1

REPORT INFORMATION
  Report Type: Spontaneous
  Country: US (occurrence: None)
  Receive Date: 20130212
  Receipt Date: 20130212
  Transmission Date: 20140127
  Serious: Yes (Other)
  Sender: FDA-Public Use
  Company Number: None

PATIENT
  Age: 51 Year
  Sex: Female
  Weight: 146.51 kg

DRUGS (1)
  1. LASIX [Suspect]
     Indication: FLUID RETENTION
     Dosage: 40 MG 1 TAB BID
     Dates: start: 20111014

REACTIONS (2)
  - Drug ineffective [None]
  - Product substitution issue [None]
